FAERS Safety Report 8845324 (Version 1)
Quarter: 2012Q4

REPORT INFORMATION
  Report Type: Report from Study
  Country: CA (occurrence: CA)
  Receive Date: 20121017
  Receipt Date: 20121017
  Transmission Date: 20130627
  Serious: Yes (Other)
  Sender: FDA-Public Use
  Company Number: CA-JNJFOC-20121002095

PATIENT
  Age: 35 Year
  Sex: Male
  Weight: 101.4 kg

DRUGS (1)
  1. REMICADE [Suspect]
     Indication: PSORIASIS
     Route: 042
     Dates: start: 20090224

REACTIONS (2)
  - Liver function test abnormal [Unknown]
  - Gastroenteritis [Unknown]
